FAERS Safety Report 9202799 (Version 2)
Quarter: 2013Q2

REPORT INFORMATION
  Report Type: Spontaneous
  Country: US (occurrence: US)
  Receive Date: 20130401
  Receipt Date: 20130410
  Transmission Date: 20140414
  Serious: Yes (Death)
  Sender: FDA-Public Use
  Company Number: US-GILEAD-2013-0072703

PATIENT
  Sex: Female

DRUGS (4)
  1. LETAIRIS [Suspect]
     Indication: PULMONARY ARTERIAL HYPERTENSION
     Dosage: 5 MG, QD
     Route: 048
     Dates: start: 20120112, end: 201303
  2. LASIX                              /00032601/ [Concomitant]
  3. GABAPENTIN [Concomitant]
  4. VANCOMYCIN [Concomitant]

REACTIONS (1)
  - Pulmonary arterial hypertension [Fatal]
